FAERS Safety Report 24162179 (Version 2)
Quarter: 2024Q3

REPORT INFORMATION
  Report Type: Spontaneous
  Country: US (occurrence: US)
  Receive Date: 20240801
  Receipt Date: 20240812
  Transmission Date: 20241017
  Serious: No
  Sender: SANOFI AVENTIS
  Company Number: US-SA-SAC20240725001465

PATIENT
  Age: 58 Year
  Sex: Male

DRUGS (6)
  1. TZIELD [Suspect]
     Active Substance: TEPLIZUMAB-MZWV
     Dosage: 148.85 UG, 1X
     Route: 042
     Dates: start: 20240724, end: 20240724
  2. TZIELD [Suspect]
     Active Substance: TEPLIZUMAB-MZWV
     Dosage: 286.25 UG, 1X
     Route: 042
     Dates: start: 20240725, end: 20240725
  3. TZIELD [Suspect]
     Active Substance: TEPLIZUMAB-MZWV
     Dosage: 572.5 UG, 1X
     Route: 042
     Dates: start: 20240726, end: 20240726
  4. TZIELD [Suspect]
     Active Substance: TEPLIZUMAB-MZWV
     Dosage: 1145 UG, 1X
     Route: 042
     Dates: start: 20240727, end: 20240727
  5. TZIELD [Suspect]
     Active Substance: TEPLIZUMAB-MZWV
     Dosage: 2358.7 UG
     Route: 042
     Dates: start: 20240728
  6. IBUPROFEN [Concomitant]
     Active Substance: IBUPROFEN
     Indication: Premedication
     Dosage: UNK
     Dates: start: 20240724

REACTIONS (2)
  - Pain [Unknown]
  - Constipation [Unknown]

NARRATIVE: CASE EVENT DATE: 20240724
